FAERS Safety Report 23509301 (Version 1)
Quarter: 2024Q1

REPORT INFORMATION
  Report Type: Spontaneous
  Country: US (occurrence: US)
  Receive Date: 20240210
  Receipt Date: 20240210
  Transmission Date: 20240410
  Serious: No
  Sender: FDA-Public Use
  Company Number: US-IBSA PHARMA INC.-2023IBS000098

PATIENT

DRUGS (1)
  1. TIROSINT-SOL [Suspect]
     Active Substance: LEVOTHYROXINE SODIUM
     Indication: Hypothyroidism
     Dosage: 137 MICROGRAM, QD
     Route: 048

REACTIONS (15)
  - Abnormal dreams [Unknown]
  - Dry eye [Unknown]
  - Eye pain [Unknown]
  - Photophobia [Unknown]
  - Brain fog [Unknown]
  - Emotional disorder [Unknown]
  - Depressed mood [Unknown]
  - Pain in extremity [Unknown]
  - Disturbance in attention [Unknown]
  - Hair texture abnormal [Unknown]
  - Night sweats [Unknown]
  - Anxiety [Unknown]
  - Heart rate increased [Unknown]
  - Alopecia [Unknown]
  - Fatigue [Unknown]

NARRATIVE: CASE EVENT DATE: 20230101
